FAERS Safety Report 8009267-4 (Version None)
Quarter: 2011Q4

REPORT INFORMATION
  Report Type: 
  Country: None (occurrence: None)
  Receive Date: 20111227
  Receipt Date: 20111220
  Transmission Date: 20120403
  Serious: Yes (Other)
  Sender: FDA-Public Use
  Company Number: JP-ELI_LILLY_AND_COMPANY-JP201112000783

PATIENT
  Age: 48 Year
  Sex: Female
  Weight: 60 kg

DRUGS (8)
  1. CISPLATIN [Concomitant]
     Indication: PLEURAL MESOTHELIOMA MALIGNANT
     Dosage: UNK
     Dates: start: 20090201
  2. ALIMTA [Suspect]
     Dosage: 650 MG, UNK
     Route: 042
     Dates: start: 20111108, end: 20111108
  3. HYDROXOCOBALAMIN ACETATE [Concomitant]
     Indication: PROPHYLAXIS
     Dosage: 1000 UG, UNK
     Route: 030
     Dates: start: 20111027, end: 20111027
  4. PANVITAN [Concomitant]
     Indication: PROPHYLAXIS
     Dosage: 1 G, UNK
     Route: 048
     Dates: start: 20111028, end: 20111213
  5. LOXONIN [Concomitant]
     Indication: PAIN IN EXTREMITY
     Dosage: 60 MG, TID
     Route: 048
     Dates: start: 20100204
  6. RABEPRAZOLE SODIUM [Concomitant]
     Indication: PROPHYLAXIS
     Dosage: 10 MG, TID
     Route: 048
     Dates: start: 20100209
  7. ALIMTA [Suspect]
     Indication: PLEURAL MESOTHELIOMA MALIGNANT
     Dosage: UNK
     Route: 042
     Dates: start: 20090201
  8. MUCOSTA [Concomitant]
     Indication: PROPHYLAXIS
     Dosage: 100 MG, TID
     Route: 048
     Dates: start: 20101029

REACTIONS (4)
  - ARTERIOSCLEROSIS [None]
  - CORONARY ARTERY STENOSIS [None]
  - MYOCARDIAL INFARCTION [None]
  - METASTASIS [None]
